FAERS Safety Report 5117733-4 (Version None)
Quarter: 2006Q3

REPORT INFORMATION
  Report Type: 
  Country: None (occurrence: None)
  Receive Date: 20060929
  Receipt Date: 20060118
  Transmission Date: 20061208
  Serious: Yes (Hospitalization)
  Sender: FDA-Public Use
  Company Number: US-GLAXOSMITHKLINE-A0589890A

PATIENT
  Age: 51 Year
  Sex: Female

DRUGS (10)
  1. TAGAMET [Suspect]
     Indication: GASTRIC ULCER
     Route: 048
     Dates: start: 19820101
  2. THORAZINE [Suspect]
     Indication: DYSTONIA
     Route: 054
     Dates: start: 19820101
  3. GLYBURIDE [Concomitant]
  4. KLONOPIN [Concomitant]
  5. UNSPECIFIED MEDICATION [Concomitant]
     Indication: CHEST PAIN
  6. NORVASC [Concomitant]
     Dosage: 5MG PER DAY
     Route: 048
  7. LABETALOL HCL [Concomitant]
     Dosage: 200MG THREE TIMES PER DAY
     Route: 048
  8. SPIRONOLACTONE [Concomitant]
     Dosage: 25MG PER DAY
     Route: 048
  9. LISINOPRIL [Concomitant]
     Dosage: 10MG PER DAY
     Route: 048
  10. VITAMIN B-12 [Concomitant]

REACTIONS (12)
  - CHOKING [None]
  - DYSKINESIA [None]
  - DYSTONIA [None]
  - HEAD DEFORMITY [None]
  - ILL-DEFINED DISORDER [None]
  - IMPAIRED DRIVING ABILITY [None]
  - LUNG DISORDER [None]
  - MARITAL PROBLEM [None]
  - MUSCLE SPASMS [None]
  - NERVOUSNESS [None]
  - TONGUE DISORDER [None]
  - TOOTH EXTRACTION [None]
